FAERS Safety Report 21101539 (Version 1)
Quarter: 2022Q3

REPORT INFORMATION
  Report Type: Spontaneous
  Country: US (occurrence: US)
  Receive Date: 20220719
  Receipt Date: 20220719
  Transmission Date: 20221027
  Serious: Yes (Other)
  Sender: FDA-Public Use
  Company Number: US-SA-SAC20220715001597

PATIENT
  Age: 52 Year
  Sex: Male

DRUGS (1)
  1. ZANTAC [Suspect]
     Active Substance: RANITIDINE HYDROCHLORIDE
     Indication: Dyspepsia
     Dosage: 75 MG;QD
     Dates: start: 201203, end: 201608

REACTIONS (5)
  - Hepatic cancer stage IV [Unknown]
  - Lung carcinoma cell type unspecified stage IV [Unknown]
  - Brain neoplasm malignant [Unknown]
  - Plasma cell myeloma [Unknown]
  - Malignant neoplasm of spinal cord [Unknown]

NARRATIVE: CASE EVENT DATE: 20160312
